FAERS Safety Report 6482018-0 (Version None)
Quarter: 2009Q4

REPORT INFORMATION
  Report Type: 
  Country: None (occurrence: None)
  Receive Date: 20091208
  Receipt Date: 20090617
  Transmission Date: 20100525
  Serious: No
  Sender: FDA-Public Use
  Company Number: US-AMGEN-KDL342075

PATIENT
  Sex: Female
  Weight: 98.3 kg

DRUGS (16)
  1. ENBREL [Suspect]
     Indication: PSORIATIC ARTHROPATHY
     Route: 058
     Dates: start: 20050601
  2. METHOTREXATE [Concomitant]
     Dates: start: 20090404
  3. HYDROCHLOROTHIAZIDE [Concomitant]
     Route: 048
  4. SINGULAIR [Concomitant]
     Route: 048
  5. ALBUTEROL [Concomitant]
  6. TOPAMAX [Concomitant]
     Route: 048
  7. FOLIC ACID [Concomitant]
     Route: 048
  8. ASTELIN [Concomitant]
  9. SALINE MIXTURE [Concomitant]
     Route: 045
  10. VERAPAMIL HCL [Concomitant]
     Route: 048
  11. NASACORT AQ [Concomitant]
  12. VENLAFAXINE HYDROCHLORIDE [Concomitant]
     Route: 048
  13. XOPENEX [Concomitant]
  14. ZYRTEC [Concomitant]
  15. ADVAIR DISKUS 100/50 [Concomitant]
  16. NEXIUM [Concomitant]
     Route: 048

REACTIONS (9)
  - ANAEMIA [None]
  - BACK PAIN [None]
  - GAIT DISTURBANCE [None]
  - IMPAIRED HEALING [None]
  - INJECTION SITE PAIN [None]
  - INTERVERTEBRAL DISC DEGENERATION [None]
  - MIGRAINE [None]
  - PSORIATIC ARTHROPATHY [None]
  - SKIN INFECTION [None]
